FAERS Safety Report 7668456-9 (Version None)
Quarter: 2011Q3

REPORT INFORMATION
  Report Type: 
  Country: None (occurrence: None)
  Receive Date: 20110808
  Receipt Date: 20110804
  Transmission Date: 20111222
  Serious: Yes (Hospitalization)
  Sender: FDA-Public Use
  Company Number: IT-SANOFI-AVENTIS-2011SA044732

PATIENT
  Age: 29 Year
  Sex: Female

DRUGS (6)
  1. MABTHERA [Suspect]
     Indication: RHEUMATOID ARTHRITIS
     Route: 042
     Dates: start: 20090204, end: 20090204
  2. ENBREL [Suspect]
     Indication: RHEUMATOID ARTHRITIS
     Route: 058
     Dates: start: 20101129, end: 20110606
  3. PREDNISONE [Concomitant]
     Route: 048
  4. ARAVA [Suspect]
     Indication: RHEUMATOID ARTHRITIS
     Route: 048
     Dates: start: 20101129, end: 20110606
  5. PLAQUENIL [Concomitant]
     Route: 048
  6. MABTHERA [Suspect]
     Route: 042
     Dates: start: 20100825, end: 20100825

REACTIONS (3)
  - PELVIC PAIN [None]
  - VAGINAL HAEMORRHAGE [None]
  - CERVIX CARCINOMA [None]
